FAERS Safety Report 9855085 (Version 2)
Quarter: 2018Q1

REPORT INFORMATION
  Report Type: Spontaneous
  Country: FR (occurrence: FR)
  Receive Date: 20140130
  Receipt Date: 20180312
  Transmission Date: 20180509
  Serious: Yes (Death, Hospitalization)
  Sender: FDA-Public Use
  Company Number: FR-B.I. PHARMACEUTICALS,INC./RIDGEFIELD-2014-BI-03688FF

PATIENT
  Age: 86 Year
  Sex: Male

DRUGS (4)
  1. SOTALOL HYDROCHLORIDE. [Concomitant]
     Active Substance: SOTALOL HYDROCHLORIDE
     Indication: PRODUCT USED FOR UNKNOWN INDICATION
     Route: 048
     Dates: end: 20140102
  2. TAHOR [Concomitant]
     Active Substance: ATORVASTATIN CALCIUM
     Indication: PRODUCT USED FOR UNKNOWN INDICATION
     Route: 048
     Dates: end: 20140102
  3. PRADAXA [Suspect]
     Active Substance: DABIGATRAN ETEXILATE MESYLATE
     Indication: ISCHAEMIC STROKE
     Route: 048
     Dates: start: 201208, end: 20140102
  4. PRADAXA [Suspect]
     Active Substance: DABIGATRAN ETEXILATE MESYLATE
     Indication: ATRIAL FIBRILLATION

REACTIONS (9)
  - Anaemia [Fatal]
  - Femur fracture [Unknown]
  - Haematoma [Unknown]
  - Disseminated intravascular coagulation [Fatal]
  - Haemothorax [Fatal]
  - Haematoma [Fatal]
  - Road traffic accident [Unknown]
  - Shock haemorrhagic [Fatal]
  - Shock [Fatal]

NARRATIVE: CASE EVENT DATE: 201401
